FAERS Safety Report 17950163 (Version 1)
Quarter: 2020Q2

REPORT INFORMATION
  Report Type: Spontaneous
  Country: US (occurrence: US)
  Receive Date: 20200626
  Receipt Date: 20200626
  Transmission Date: 20200714
  Serious: No
  Sender: FDA-Public Use
  Company Number: US-TEVA-2020-US-1793446

PATIENT
  Sex: Male

DRUGS (15)
  1. LOSARTAN POT TAB 100MG [Concomitant]
  2. OMEPRAZOLE CAP 40MG [Concomitant]
     Active Substance: OMEPRAZOLE
  3. AMLODIPINE TAB 10 MG [Concomitant]
  4. COPAXONE [Suspect]
     Active Substance: GLATIRAMER ACETATE
     Indication: PRODUCT USED FOR UNKNOWN INDICATION
     Route: 058
     Dates: start: 20200323
  5. B-12 TAB 500MCG [Concomitant]
  6. GINKOBA TAB 40MG [Concomitant]
  7. IBUPROFEN TAB 400 MG [Concomitant]
  8. SPIRONOLACT [Concomitant]
     Active Substance: SPIRONOLACTONE
  9. HYDROCHLOROT TAB 25 MG [Concomitant]
  10. SPIRONOLACT [Concomitant]
     Active Substance: SPIRONOLACTONE
  11. B-COMPLEX TAB [Concomitant]
  12. IRON TAB 325MG [Concomitant]
  13. METHIMAZOLE TAB 5MG [Concomitant]
  14. VITAMIN D-3 TAB 5000 UNIT [Concomitant]
  15. SENNA TAB 8.6MG [Concomitant]

REACTIONS (1)
  - Injection site pain [Not Recovered/Not Resolved]
